FAERS Safety Report 20935271 (Version 1)
Quarter: 2022Q2

REPORT INFORMATION
  Report Type: Spontaneous
  Country: IN (occurrence: IN)
  Receive Date: 20220609
  Receipt Date: 20220609
  Transmission Date: 20220721
  Serious: Yes (Death, Life-Threatening, Hospitalization, Other)
  Sender: FDA-Public Use
  Company Number: IN-SUN PHARMACEUTICAL INDUSTRIES LTD-2022R1-339713

PATIENT
  Age: 44 Year
  Sex: Male

DRUGS (6)
  1. AMPHOTERICIN B [Suspect]
     Active Substance: AMPHOTERICIN B
     Indication: Mucormycosis
     Dosage: 5 MILLIGRAM/KILOGRAM, UNK
     Route: 065
  2. AMPHOTERICIN B [Suspect]
     Active Substance: AMPHOTERICIN B
     Indication: Cytomegalovirus infection
  3. GANCICLOVIR [Suspect]
     Active Substance: GANCICLOVIR
     Indication: Mucormycosis
     Dosage: UNK
     Route: 042
  4. GANCICLOVIR [Suspect]
     Active Substance: GANCICLOVIR
     Indication: Cytomegalovirus infection
  5. POSACONAZOLE [Suspect]
     Active Substance: POSACONAZOLE
     Indication: Mucormycosis
     Dosage: UNK
     Route: 042
  6. POSACONAZOLE [Suspect]
     Active Substance: POSACONAZOLE
     Indication: Cytomegalovirus infection

REACTIONS (2)
  - Septic shock [Fatal]
  - Condition aggravated [Unknown]
